FAERS Safety Report 9053634 (Version 1)
Quarter: 2013Q1

REPORT INFORMATION
  Report Type: Spontaneous
  Country: US (occurrence: None)
  Receive Date: 20130117
  Receipt Date: 20130117
  Transmission Date: 20140127
  Serious: Yes (Life-Threatening, Hospitalization)
  Sender: FDA-Public Use
  Company Number: DAV-AE-ALP-13-03

PATIENT
  Age: 59 Year
  Sex: Male

DRUGS (1)
  1. ALPRAZOLAM [Suspect]

REACTIONS (16)
  - Posterior reversible encephalopathy syndrome [None]
  - Overdose [None]
  - Unresponsive to stimuli [None]
  - Respiratory acidosis [None]
  - Myocardial infarction [None]
  - Pneumonia aspiration [None]
  - Rhabdomyolysis [None]
  - Renal failure acute [None]
  - Haemodialysis [None]
  - Agitation [None]
  - Cognitive disorder [None]
  - Speech disorder [None]
  - Memory impairment [None]
  - Judgement impaired [None]
  - Memory impairment [None]
  - Hypoxia [None]
